FAERS Safety Report 7459364-7 (Version None)
Quarter: 2011Q2

REPORT INFORMATION
  Report Type: 
  Country: None (occurrence: None)
  Receive Date: 20110505
  Receipt Date: 20110419
  Transmission Date: 20111010
  Serious: No
  Sender: FDA-Public Use
  Company Number: US-B.I. PHARMACEUTICALS,INC./RIDGEFIELD-2011-BP-02052BP

PATIENT
  Sex: Female

DRUGS (6)
  1. MICARDIS [Suspect]
     Dosage: 80 MG
  2. MICARDIS [Suspect]
     Indication: HYPERTENSION
     Dosage: 40 MG
     Route: 048
     Dates: start: 20110101
  3. LISINOPRIL [Suspect]
     Indication: BLOOD PRESSURE
  4. XOPENEX [Concomitant]
  5. VERAPAMIL [Suspect]
     Indication: BLOOD PRESSURE
  6. ASPIRIN [Concomitant]
     Indication: ANTICOAGULANT THERAPY
     Dosage: 325 MG
     Route: 048

REACTIONS (5)
  - VISUAL IMPAIRMENT [None]
  - ALOPECIA [None]
  - OEDEMA PERIPHERAL [None]
  - VISION BLURRED [None]
  - VISUAL ACUITY REDUCED [None]
